FAERS Safety Report 10722137 (Version 1)
Quarter: 2015Q1

REPORT INFORMATION
  Report Type: Spontaneous
  Country: SE (occurrence: SE)
  Receive Date: 20150119
  Receipt Date: 20150119
  Transmission Date: 20150721
  Serious: Yes (Other)
  Sender: FDA-Public Use
  Company Number: SE-MERCK-1501SWE005728

PATIENT
  Age: 74 Year
  Sex: Female

DRUGS (1)
  1. LOSARTAN POTASSIUM. [Suspect]
     Active Substance: LOSARTAN POTASSIUM
     Route: 048

REACTIONS (3)
  - Fatigue [Unknown]
  - Rhinorrhoea [Unknown]
  - Sleep disorder [Unknown]
